FAERS Safety Report 6536587-2 (Version None)
Quarter: 2010Q1

REPORT INFORMATION
  Report Type: 
  Country: None (occurrence: None)
  Receive Date: 20100113
  Receipt Date: 20100108
  Transmission Date: 20100710
  Serious: Yes (Hospitalization)
  Sender: FDA-Public Use
  Company Number: FR-WYE-G05302410

PATIENT
  Sex: Female
  Weight: 43 kg

DRUGS (4)
  1. RHINADVIL [Suspect]
     Indication: NASOPHARYNGITIS
     Dosage: 1 TO 3 TABLETS TOTAL DAILY
     Route: 048
     Dates: start: 20091215, end: 20091220
  2. NASONEX [Suspect]
     Indication: NASOPHARYNGITIS
     Dosage: UNKNOWN
     Route: 045
     Dates: start: 20091101, end: 20091220
  3. AERIUS [Suspect]
     Indication: NASOPHARYNGITIS
     Dosage: UNKNOWN
     Route: 048
     Dates: start: 20091101, end: 20091220
  4. MANTADIX [Suspect]
     Indication: NASOPHARYNGITIS
     Route: 048
     Dates: start: 20091215, end: 20091220

REACTIONS (4)
  - COMPLEX PARTIAL SEIZURES [None]
  - DRUG ADMINISTRATION ERROR [None]
  - GRAND MAL CONVULSION [None]
  - PAIN IN EXTREMITY [None]
